FAERS Safety Report 16392622 (Version 1)
Quarter: 2019Q2

REPORT INFORMATION
  Report Type: Spontaneous
  Country: CN (occurrence: CN)
  Receive Date: 20190605
  Receipt Date: 20190605
  Transmission Date: 20190711
  Serious: Yes (Hospitalization)
  Sender: FDA-Public Use
  Company Number: CN-ROCHE-2328084

PATIENT
  Age: 12 Year
  Sex: Male
  Weight: 37 kg

DRUGS (1)
  1. MABTHERA [Suspect]
     Active Substance: RITUXIMAB
     Indication: IMMUNE SYSTEM DISORDER
     Route: 041
     Dates: start: 20190522, end: 20190522

REACTIONS (9)
  - Off label use [Unknown]
  - Flushing [Recovering/Resolving]
  - Headache [Recovering/Resolving]
  - Chest discomfort [Recovering/Resolving]
  - Pharyngeal oedema [Recovering/Resolving]
  - Rash [Recovering/Resolving]
  - Intentional product use issue [Unknown]
  - Dyspnoea [Recovering/Resolving]
  - Pyrexia [Recovered/Resolved]

NARRATIVE: CASE EVENT DATE: 20190522
